FAERS Safety Report 8810737 (Version 1)
Quarter: 2012Q4

REPORT INFORMATION
  Report Type: 
  Country: US (occurrence: US)
  Receive Date: 20120927
  Receipt Date: 20120927
  Transmission Date: 20130627
  Serious: No
  Sender: FDA-Public Use
  Company Number: US-PFIZER INC-2012236560

PATIENT
  Age: 45 Year

DRUGS (5)
  1. LIPITOR [Suspect]
     Dosage: UNK
  2. FISH OIL [Suspect]
     Dosage: UNK
  3. ACIPHEX [Concomitant]
     Dosage: 20 mg, 2x/day
  4. ASPIRIN [Concomitant]
     Dosage: 81 mg, 1x/day
  5. ENALAPRIL MALEATE [Concomitant]
     Indication: HYPERTENSION
     Dosage: 10 mg, 1x/day

REACTIONS (1)
  - Drug hypersensitivity [Unknown]
